FAERS Safety Report 9360404 (Version 1)
Quarter: 2013Q2

REPORT INFORMATION
  Report Type: Spontaneous
  Country: US (occurrence: US)
  Receive Date: 20130621
  Receipt Date: 20130621
  Transmission Date: 20140414
  Serious: No
  Sender: FDA-Public Use
  Company Number: US-BAYER-2013-068745

PATIENT
  Sex: 0

DRUGS (1)
  1. AVELOX [Suspect]
     Dosage: 400 MG DAILY
     Route: 048

REACTIONS (1)
  - Wrong technique in drug usage process [None]
